FAERS Safety Report 12410386 (Version 2)
Quarter: 2016Q4

REPORT INFORMATION
  Report Type: Report from Study
  Country: US (occurrence: US)
  Receive Date: 20160527
  Receipt Date: 20161114
  Transmission Date: 20170207
  Serious: Yes (Other)
  Sender: FDA-Public Use
  Company Number: PHEH2016US012556

PATIENT
  Sex: Male

DRUGS (2)
  1. COSENTYX [Suspect]
     Active Substance: SECUKINUMAB
     Indication: PSORIATIC ARTHROPATHY
  2. COSENTYX [Suspect]
     Active Substance: SECUKINUMAB
     Indication: PSORIASIS
     Dosage: 300 MG, QW
     Route: 065

REACTIONS (7)
  - Swelling face [Recovering/Resolving]
  - Eye swelling [Recovering/Resolving]
  - Ear infection [Unknown]
  - Dizziness postural [Recovering/Resolving]
  - General physical health deterioration [Unknown]
  - Pruritus generalised [Recovering/Resolving]
  - Kidney infection [Unknown]
